FAERS Safety Report 5382425-3 (Version None)
Quarter: 2007Q2

REPORT INFORMATION
  Report Type: 
  Country: None (occurrence: None)
  Receive Date: 20070629
  Receipt Date: 20060509
  Transmission Date: 20071010
  Serious: Yes (Other)
  Sender: FDA-Public Use
  Company Number: VISP-PR-0605S-0286

PATIENT
  Age: 39 Year
  Sex: Female

DRUGS (1)
  1. VISIPAQUE [Suspect]
     Indication: DRUG USE FOR UNKNOWN INDICATION
     Dosage: 100 ML, SINGLE DOSE,  I.V.
     Route: 042
     Dates: start: 20060313, end: 20060313

REACTIONS (1)
  - ANAPHYLACTOID REACTION [None]
